FAERS Safety Report 4803696-5 (Version None)
Quarter: 2005Q4

REPORT INFORMATION
  Report Type: 
  Country: None (occurrence: None)
  Receive Date: 20051014
  Receipt Date: 20051004
  Transmission Date: 20060501
  Serious: Yes (Hospitalization)
  Sender: FDA-Public Use
  Company Number: 218341

PATIENT
  Age: 50 Year
  Sex: Female
  Weight: 75 kg

DRUGS (6)
  1. MABTHERA(RITUXIMAB) CONC FOR SOLUTION FOR INFUSION [Suspect]
     Dosage: 3 MG, QD, INTRAVENOUS
     Route: 042
     Dates: start: 20050725, end: 20050729
  2. DEXAMETHASONE [Suspect]
     Dosage: 40 MG, QD, INTRAVENOUS
     Route: 042
     Dates: start: 20050725, end: 20050729
  3. CISPLATIN [Suspect]
     Dosage: 47.7 MG, QD, INTRAVENOUS
     Route: 042
     Dates: start: 20050725, end: 20050729
  4. VEPESID [Suspect]
     Dosage: 68.4 MG, QD, INTRAVENOUS
     Route: 042
     Dates: start: 20050725, end: 20050729
  5. ARACYTINE (CYTARABINE) [Suspect]
     Dosage: 3420 MG,
     Dates: start: 20050729, end: 20050729
  6. KYTRIL [Suspect]

REACTIONS (3)
  - AGRANULOCYTOSIS [None]
  - EOSINOPHIL COUNT DECREASED [None]
  - WHITE BLOOD CELL COUNT DECREASED [None]
